FAERS Safety Report 14606783 (Version 4)
Quarter: 2019Q2

REPORT INFORMATION
  Report Type: Report from Study
  Country: SE (occurrence: SE)
  Receive Date: 20180307
  Receipt Date: 20190520
  Transmission Date: 20190711
  Serious: Yes (Death, Life-Threatening, Hospitalization)
  Sender: FDA-Public Use
  Company Number: SE-ROCHE-1634898

PATIENT
  Age: 73 Year
  Sex: Female
  Weight: 72.2 kg

DRUGS (26)
  1. SIMVASTATIN. [Concomitant]
     Active Substance: SIMVASTATIN
     Indication: HYPERLIPIDAEMIA
     Dosage: 1 TABLET AT NIGHT
     Route: 048
  2. HUMALOG [Concomitant]
     Active Substance: INSULIN LISPRO
     Dosage: 100 U/ML?4 U SOLUTION FOR INJECTION IN THE MORNING, 4 U SOLUTION?FOR INJECTION AT LUNCH, 4 U SOLUTIO
     Route: 065
     Dates: start: 20151114
  3. IBRUTINIB [Suspect]
     Active Substance: IBRUTINIB
     Dosage: MOST RECENT DOSE PRIOR TO ONSET OF LIVER METASTASES: 12/JAN/2016?DOSE DELAYED ON 02/FEB/2016 AND RES
     Route: 048
     Dates: start: 20151020
  4. PRIMPERAN [Concomitant]
     Active Substance: METOCLOPRAMIDE HYDROCHLORIDE
     Indication: VOMITING
     Dosage: INJECTABLE SOLUTION 5 MG/ML
     Route: 065
     Dates: start: 20151013, end: 20151013
  5. BETAPRED [Concomitant]
     Active Substance: BETAMETHASONE SODIUM PHOSPHATE
     Dosage: 4 MG/ML, 4 ML SOLUTION FOR INJECTION AS NEEDED. MAX. 8 ML PER DAY
     Route: 065
     Dates: start: 20150910
  6. AMLODIPINE [Concomitant]
     Active Substance: AMLODIPINE BESYLATE
     Indication: HYPERTENSION
     Dosage: 1 TABLET IN THE MORNING
     Route: 048
     Dates: start: 20110621
  7. OXYNORM [Concomitant]
     Active Substance: OXYCODONE HYDROCHLORIDE
     Indication: PAIN
     Route: 048
     Dates: start: 20151006
  8. ESOMEPRAZOLE. [Concomitant]
     Active Substance: ESOMEPRAZOLE MAGNESIUM
     Route: 065
     Dates: start: 20151012
  9. LEVEMIR [Concomitant]
     Active Substance: INSULIN DETEMIR
     Indication: HYPOTHYROIDISM
     Dosage: 100 U/ML?12 U SOLUTION FOR INJECTION IN THE MORNING, 10 U?SOLUTION FOR INJECTION IN THE EVENING
     Route: 065
     Dates: start: 20111219
  10. INSULIN LISPRO [Concomitant]
     Active Substance: INSULIN LISPRO
     Indication: DIABETES MELLITUS
     Route: 058
  11. GLUCAGON. [Concomitant]
     Active Substance: GLUCAGON
     Dosage: POWDER AND SOLVENT FOR SOLUTION FOR INJECTION IN PRE-FILLED SYRINGE
     Route: 065
     Dates: start: 20111222
  12. CETIRIZINE [Concomitant]
     Active Substance: CETIRIZINE HYDROCHLORIDE
     Dosage: 1 TABLET AS NEEDED ANTIHISTAMINE. MAX. 1 PC PER DAY
     Route: 065
     Dates: start: 20150910
  13. OBINUTUZUMAB. [Suspect]
     Active Substance: OBINUTUZUMAB
     Indication: CHRONIC LYMPHOCYTIC LEUKAEMIA
     Dosage: 100 + 900 MG?DATE OF LAST DOSE: 25/SEP/2015, 1000 MG
     Route: 042
     Dates: start: 20150910
  14. HUMALOG [Concomitant]
     Active Substance: INSULIN LISPRO
     Route: 065
     Dates: start: 20111219
  15. ZYLORIC [Concomitant]
     Active Substance: ALLOPURINOL
     Route: 065
  16. PRIMPERAN [Concomitant]
     Active Substance: METOCLOPRAMIDE HYDROCHLORIDE
     Indication: NAUSEA
     Dosage: 1 TABLET AS NEEDED. MAX. 3 PCS PER DAY
     Route: 065
     Dates: start: 20150910
  17. ALVEDON [Concomitant]
     Active Substance: ACETAMINOPHEN
     Dosage: 2 TABLETS AS NEEDED. MAX. 8 PCS PER DAY
     Route: 065
     Dates: start: 20150910
  18. ENALAPRIL [Concomitant]
     Active Substance: ENALAPRIL
     Dosage: 1 TABLET IN THE MORNING
     Route: 048
     Dates: start: 20110621
  19. LEVAXIN [Concomitant]
     Active Substance: LEVOTHYROXINE SODIUM
     Dosage: 1 TABLET IN THE MORNING
     Route: 065
  20. ALVEDON [Concomitant]
     Active Substance: ACETAMINOPHEN
     Dosage: 2 TABLETS 1-3 TIMES PER DAY AS NEEDED FOR PAIN
     Route: 065
  21. FRAGMIN [Concomitant]
     Active Substance: DALTEPARIN SODIUM
     Dosage: 5000 IU/DOSE (0.2 ML), SOLUTION FOR INJECTION?1 SYRINGE IN THE EVENING
     Route: 065
     Dates: start: 20151004, end: 20151103
  22. IBRUTINIB [Suspect]
     Active Substance: IBRUTINIB
     Indication: CHRONIC LYMPHOCYTIC LEUKAEMIA
     Dosage: DATE OF LAST DOSE PRIOR TO URINARY TRACT INFECTION: 11/SEP/2015?DATE OF LAST DOSE PRIOR TO SEPTICEMI
     Route: 048
     Dates: start: 20150910
  23. INSULIN DETEMIR [Concomitant]
     Active Substance: INSULIN DETEMIR
     Indication: DIABETES MELLITUS
     Route: 058
  24. PRIVIGEN [Concomitant]
     Active Substance: HUMAN IMMUNOGLOBULIN G
     Dosage: 100 MG/ML, 10 INTRAVENOUS EVERY FOURTH WEEK UNTIL FURTHER NOTICE.
     Route: 042
     Dates: start: 20150528
  25. NOVORAPID [Concomitant]
     Active Substance: INSULIN ASPART
     Dosage: 100 U/ML
     Route: 065
  26. CILAXORAL [Concomitant]
     Active Substance: SODIUM PICOSULFATE
     Dosage: SOLUTION 7.5 MG/ML
     Route: 065
     Dates: start: 20150929

REACTIONS (7)
  - Abdominal pain [Recovered/Resolved]
  - Colorectal cancer [Recovered/Resolved]
  - Listeria sepsis [Recovered/Resolved]
  - Colorectal cancer metastatic [Fatal]
  - Escherichia sepsis [Recovered/Resolved]
  - Urinary tract infection [Recovered/Resolved]
  - Atrial fibrillation [Recovered/Resolved]

NARRATIVE: CASE EVENT DATE: 20150912
